FAERS Safety Report 6295203-8 (Version None)
Quarter: 2009Q3

REPORT INFORMATION
  Report Type: 
  Country: None (occurrence: None)
  Receive Date: 20090803
  Receipt Date: 20090721
  Transmission Date: 20100115
  Serious: Yes (Other)
  Sender: FDA-Public Use
  Company Number: AU-MYLANLABS-2009S1012813

PATIENT
  Age: 45 Year
  Sex: Female

DRUGS (7)
  1. BOSENTAN [Interacting]
     Indication: PULMONARY HYPERTENSION
     Dates: start: 20050504, end: 20060901
  2. METHOTREXATE [Suspect]
     Indication: ARTHROPATHY
     Route: 048
     Dates: start: 20060516
  3. METHOTREXATE [Interacting]
     Route: 048
     Dates: end: 20060801
  4. METHOTREXATE [Interacting]
     Route: 058
     Dates: start: 20060816, end: 20060901
  5. PREDNISOLONE [Concomitant]
  6. FOLIC ACID [Concomitant]
  7. OMEPRAZOLE [Concomitant]

REACTIONS (2)
  - DRUG INTERACTION [None]
  - HEPATOTOXICITY [None]
